FAERS Safety Report 7452296-X (Version None)
Quarter: 2011Q2

REPORT INFORMATION
  Report Type: 
  Country: None (occurrence: None)
  Receive Date: 20110502
  Receipt Date: 20110418
  Transmission Date: 20111010
  Serious: Yes (Other)
  Sender: FDA-Public Use
  Company Number: AT-JNJFOC-20110408420

PATIENT
  Age: 41 Year
  Sex: Female

DRUGS (11)
  1. REMICADE [Suspect]
     Indication: ANKYLOSING SPONDYLITIS
     Route: 042
  2. OXYBUTYNIN [Concomitant]
     Route: 065
  3. REMICADE [Suspect]
     Route: 042
  4. DEANXIT [Concomitant]
     Route: 065
  5. CALCIUM [Concomitant]
     Route: 065
  6. ALPRAZOLAM [Concomitant]
     Route: 065
  7. PANTOLOC [Concomitant]
     Route: 065
  8. NEURONTIN [Concomitant]
     Route: 065
  9. LORNOXICAM [Concomitant]
     Route: 065
  10. METOPROLOL TARTRATE [Concomitant]
     Route: 065
  11. FLUCTINE [Concomitant]
     Route: 065

REACTIONS (5)
  - DYSPNOEA [None]
  - FLUSHING [None]
  - ANGINA PECTORIS [None]
  - INFUSION RELATED REACTION [None]
  - HYPOTONIA [None]
